FAERS Safety Report 4556204-0 (Version None)
Quarter: 2005Q1

REPORT INFORMATION
  Report Type: 
  Country: None (occurrence: None)
  Receive Date: 20050103
  Receipt Date: 20040823
  Transmission Date: 20050727
  Serious: Yes (Hospitalization)
  Sender: FDA-Public Use
  Company Number: 2004UW17944

PATIENT
  Age: 28 Year
  Sex: Female
  Weight: 114.3065 kg

DRUGS (5)
  1. CRESTOR [Suspect]
     Indication: HYPERLIPIDAEMIA
     Dosage: 10 MG QD PO
     Route: 048
     Dates: start: 20040514, end: 20040812
  2. SYNTHROID [Concomitant]
  3. ORTHO TRI-CYCLEN [Concomitant]
  4. ZANAFLEX [Concomitant]
  5. NORCO [Concomitant]

REACTIONS (1)
  - PANCREATITIS ACUTE [None]
